FAERS Safety Report 10084661 (Version 1)
Quarter: 2014Q2

REPORT INFORMATION
  Report Type: Spontaneous
  Country: BR (occurrence: None)
  Receive Date: 20140414
  Receipt Date: 20140414
  Transmission Date: 20141212
  Serious: Yes (Life-Threatening)
  Sender: FDA-Public Use
  Company Number: BR-20140022

PATIENT
  Age: 28 Year
  Sex: Female

DRUGS (1)
  1. DOTAREM (GADOTERIC ACID) [Suspect]
     Indication: NUCLEAR MAGNETIC RESONANCE IMAGING
     Dosage: 10 ML, 1 IN 1 D
     Route: 042
     Dates: start: 20140225, end: 20140225

REACTIONS (5)
  - Bronchospasm [None]
  - Dyspnoea [None]
  - Nausea [None]
  - Cough [None]
  - Sneezing [None]
